FAERS Safety Report 23933789 (Version 1)
Quarter: 2024Q2

REPORT INFORMATION
  Report Type: Spontaneous
  Country: CN (occurrence: CN)
  Receive Date: 20240603
  Receipt Date: 20240603
  Transmission Date: 20240716
  Serious: Yes (Other)
  Sender: FDA-Public Use
  Company Number: CN-PFIZER INC-PV202400071448

PATIENT
  Age: 5 Year
  Sex: Male
  Weight: 25.9 kg

DRUGS (3)
  1. CYTARABINE [Suspect]
     Active Substance: CYTARABINE
     Indication: Neoplasm
     Dosage: 0.048 G, 2X/DAY
     Route: 041
     Dates: start: 20240524, end: 20240528
  2. ETOPOSIDE [Concomitant]
     Active Substance: ETOPOSIDE
     Indication: Neoplasm
     Dosage: 142.5 MG, 1X/DAY
     Route: 041
     Dates: start: 20240524
  3. ETOPOSIDE [Concomitant]
     Active Substance: ETOPOSIDE
     Dosage: 142.5 MG, 1X/DAY
     Route: 041
     Dates: end: 20240526

REACTIONS (2)
  - Neutrophil percentage increased [Unknown]
  - Pyrexia [Recovered/Resolved]

NARRATIVE: CASE EVENT DATE: 20240525
